FAERS Safety Report 17661743 (Version 2)
Quarter: 2020Q3

REPORT INFORMATION
  Report Type: Spontaneous
  Country: US (occurrence: US)
  Receive Date: 20200413
  Receipt Date: 20200708
  Transmission Date: 20201102
  Serious: Yes (Other)
  Sender: FDA-Public Use
  Company Number: US-PFIZER INC-2020150670

PATIENT
  Age: 68 Year
  Sex: Male

DRUGS (1)
  1. GABAPENTIN. [Suspect]
     Active Substance: GABAPENTIN
     Indication: NEUROPATHY PERIPHERAL
     Dosage: 300 MG, 2X/DAY

REACTIONS (6)
  - Off label use [Unknown]
  - Amyloidosis [Unknown]
  - Carpal tunnel syndrome [Unknown]
  - Polyneuropathy [Unknown]
  - Dysaesthesia [Unknown]
  - Product use in unapproved indication [Unknown]
